FAERS Safety Report 6225313-2 (Version None)
Quarter: 2009Q2

REPORT INFORMATION
  Report Type: 
  Country: None (occurrence: None)
  Receive Date: 20090612
  Receipt Date: 20090414
  Transmission Date: 20091009
  Serious: No
  Sender: FDA-Public Use
  Company Number: US-ABBOTT-09P-163-0568355-00

PATIENT
  Sex: Female

DRUGS (2)
  1. HUMIRA [Suspect]
     Indication: CROHN'S DISEASE
     Dates: start: 20071015
  2. HUMIRA [Suspect]

REACTIONS (3)
  - BRONCHITIS [None]
  - PHARYNGITIS STREPTOCOCCAL [None]
  - STAPHYLOCOCCAL INFECTION [None]
